FAERS Safety Report 7811395-0 (Version None)
Quarter: 2011Q4

REPORT INFORMATION
  Report Type: 
  Country: None (occurrence: None)
  Receive Date: 20111013
  Receipt Date: 20110909
  Transmission Date: 20120403
  Serious: Yes (Death, Other)
  Sender: FDA-Public Use
  Company Number: JP-PFIZER INC-2011213060

PATIENT
  Age: 82 Year
  Sex: Male

DRUGS (6)
  1. CANDESARTAN CILEXETIL [Concomitant]
     Indication: HYPERTENSION
     Dosage: 8 MG, DAILY
     Route: 048
  2. BISOLVON [Concomitant]
     Dosage: 12 MG, DAILY
     Route: 048
  3. ALLEGRA [Concomitant]
     Dosage: 120 MG, DAILY
     Route: 048
  4. VARENICLINE TARTRATE [Suspect]
     Dosage: 2 MG, DAILY
     Route: 048
     Dates: start: 20110827
  5. NORVASC [Concomitant]
     Indication: HYPERTENSION
     Dosage: 5 MG,DAILY
     Route: 048
  6. VARENICLINE TARTRATE [Suspect]
     Indication: SMOKING CESSATION THERAPY
     Dosage: UNK
     Route: 048
     Dates: start: 20110819, end: 20110801

REACTIONS (3)
  - CHEST PAIN [None]
  - NAUSEA [None]
  - MYOCARDIAL INFARCTION [None]
